FAERS Safety Report 4737581-4 (Version None)
Quarter: 2005Q3

REPORT INFORMATION
  Report Type: 
  Country: None (occurrence: None)
  Receive Date: 20050809
  Receipt Date: 20050513
  Transmission Date: 20060218
  Serious: No
  Sender: FDA-Public Use
  Company Number: US-GLAXOSMITHKLINE-A0558448A

PATIENT
  Age: 51 Year
  Sex: Female

DRUGS (15)
  1. COMMIT [Suspect]
     Dates: start: 20050429
  2. PAXIL [Concomitant]
  3. TEGRETOL [Concomitant]
  4. KLONOPIN [Concomitant]
  5. RISPERDAL [Concomitant]
  6. ZANAFLEX [Concomitant]
     Indication: BACK INJURY
  7. NEURONTIN [Concomitant]
  8. NAPROXIN [Concomitant]
  9. FLONASE [Concomitant]
     Indication: MULTIPLE ALLERGIES
  10. CLARITIN [Concomitant]
     Indication: MULTIPLE ALLERGIES
  11. VIACTIV [Concomitant]
  12. VITAMIN B COMPLEX CAP [Concomitant]
  13. ASCORBIC ACID [Concomitant]
  14. VITAMIN E [Concomitant]
  15. HAIR, NAIL + SKIN VITAMIN [Concomitant]

REACTIONS (1)
  - NAUSEA [None]
